FAERS Safety Report 9402623 (Version 2)
Quarter: 2014Q3

REPORT INFORMATION
  Report Type: Spontaneous
  Country: MK (occurrence: MK)
  Receive Date: 20130716
  Receipt Date: 20140719
  Transmission Date: 20150326
  Serious: Yes (Hospitalization, Other)
  Sender: FDA-Public Use
  Company Number: PHHY2013MK074248

PATIENT
  Age: 24 Year
  Sex: Female

DRUGS (1)
  1. TRAMADOL [Suspect]
     Active Substance: TRAMADOL
     Dosage: 1000 MG, 20 PILLS OF 50 MG

REACTIONS (6)
  - Suicide attempt [Unknown]
  - Hypotension [Unknown]
  - Drug abuse [Unknown]
  - Toxicity to various agents [Unknown]
  - Generalised tonic-clonic seizure [Recovered/Resolved]
  - Somnolence [Recovering/Resolving]
